FAERS Safety Report 5441407-3 (Version None)
Quarter: 2007Q3

REPORT INFORMATION
  Report Type: 
  Country: None (occurrence: None)
  Receive Date: 20070829
  Receipt Date: 20070829
  Transmission Date: 20080115
  Serious: Yes (Hospitalization)
  Sender: FDA-Public Use
  Company Number: None

PATIENT
  Age: 77 Year
  Sex: Female

DRUGS (2)
  1. CARIMUNE [Suspect]
     Indication: RADICULOPATHY
     Dosage: 24G DAILY X 2 DOSES IV 2 DOSES
     Route: 042
  2. GAMUNEX [Suspect]
     Indication: RADICULOPATHY
     Dosage: 25G IV X 1 DOSE IV 1 DOSE
     Route: 042

REACTIONS (5)
  - CONFUSIONAL STATE [None]
  - CONVULSION [None]
  - MENTAL STATUS CHANGES [None]
  - MUSCULAR WEAKNESS [None]
  - RENAL FAILURE [None]
